FAERS Safety Report 6920093-7 (Version None)
Quarter: 2010Q3

REPORT INFORMATION
  Report Type: 
  Country: None (occurrence: None)
  Receive Date: 20100811
  Receipt Date: 20100804
  Transmission Date: 20110219
  Serious: Yes (Life-Threatening)
  Sender: FDA-Public Use
  Company Number: TR-GENZYME-CERZ-1001425

PATIENT

DRUGS (1)
  1. CEREZYME [Suspect]
     Indication: GAUCHER'S DISEASE
     Route: 042

REACTIONS (3)
  - ABDOMINAL DISTENSION [None]
  - DISEASE PROGRESSION [None]
  - RESPIRATORY DISORDER [None]
